FAERS Safety Report 23835841 (Version 1)
Quarter: 2024Q2

REPORT INFORMATION
  Report Type: Spontaneous
  Country: CN (occurrence: CN)
  Receive Date: 20240509
  Receipt Date: 20240509
  Transmission Date: 20240716
  Serious: Yes (Other)
  Sender: FDA-Public Use
  Company Number: CN-Accord-423222

PATIENT
  Age: 19 Year
  Sex: Male

DRUGS (18)
  1. ARIPIPRAZOLE [Interacting]
     Active Substance: ARIPIPRAZOLE
     Indication: Product used for unknown indication
  2. VINCRISTINE [Interacting]
     Active Substance: VINCRISTINE
     Indication: Alveolar rhabdomyosarcoma
     Dosage: (DMAX- 2.0 MG), D1, D8, D15
  3. FLUCONAZOLE [Interacting]
     Active Substance: FLUCONAZOLE
     Indication: Antifungal treatment
  4. ACTINOMYCIN D [Concomitant]
     Active Substance: DACTINOMYCIN
     Indication: Alveolar rhabdomyosarcoma
     Dosage: 0.045 MG/KG (DMAX-2.5 MG), D1
  5. CYCLOPHOSPHAMIDE [Concomitant]
     Active Substance: CYCLOPHOSPHAMIDE
     Indication: Alveolar rhabdomyosarcoma
     Dosage: 1.2 G/M2?D1
  6. CARBOPLATIN [Concomitant]
     Active Substance: CARBOPLATIN
     Indication: Alveolar rhabdomyosarcoma
     Dosage: D1
  7. BEVACIZUMAB [Concomitant]
     Active Substance: BEVACIZUMAB
     Indication: Alveolar rhabdomyosarcoma
     Dosage: D1
  8. ETOPOSIDE [Concomitant]
     Active Substance: ETOPOSIDE
     Indication: Alveolar rhabdomyosarcoma
     Dosage: 150 MG/M2; D1-D3
  9. IRINOTECAN [Concomitant]
     Active Substance: IRINOTECAN
     Indication: Alveolar rhabdomyosarcoma
     Dosage: 50 MG D1-D5
  10. ADRIAMYCIN [Concomitant]
     Active Substance: DOXORUBICIN HYDROCHLORIDE
     Indication: Alveolar rhabdomyosarcoma
     Dosage: 30 MG/M2; D1-D2
  11. IFOSFAMIDE [Concomitant]
     Active Substance: IFOSFAMIDE
     Indication: Alveolar rhabdomyosarcoma
     Dosage: 9 G/M2; 1.8 G/M2; D1-D5
  12. ACTINOMYCIN D [Concomitant]
     Active Substance: DACTINOMYCIN
     Indication: Alveolar rhabdomyosarcoma
     Dosage: 0.045 MG/KG (DMAX-2.5 MG), D1
  13. ACTINOMYCIN D [Concomitant]
     Active Substance: DACTINOMYCIN
     Indication: Alveolar rhabdomyosarcoma
     Dosage: 0.045 MG/KG (DMAX-2.5 MG), D1
  14. BEVACIZUMAB [Concomitant]
     Active Substance: BEVACIZUMAB
     Indication: Alveolar rhabdomyosarcoma
     Dosage: D1
  15. ACTINOMYCIN D [Concomitant]
     Active Substance: DACTINOMYCIN
     Indication: Alveolar rhabdomyosarcoma
     Dosage: 0.045 MG/KG (DMAX-2.5 MG), D1
  16. CARBOPLATIN [Concomitant]
     Active Substance: CARBOPLATIN
     Indication: Alveolar rhabdomyosarcoma
     Dosage: D1
  17. BEVACIZUMAB [Concomitant]
     Active Substance: BEVACIZUMAB
     Indication: Alveolar rhabdomyosarcoma
     Dosage: D1
  18. BEVACIZUMAB [Concomitant]
     Active Substance: BEVACIZUMAB
     Indication: Alveolar rhabdomyosarcoma
     Dosage: D1

REACTIONS (2)
  - Neuropathy peripheral [Recovering/Resolving]
  - Drug interaction [Recovering/Resolving]
